FAERS Safety Report 23341522 (Version 1)
Quarter: 2023Q4

REPORT INFORMATION
  Report Type: Spontaneous
  Country: ES (occurrence: ES)
  Receive Date: 20231227
  Receipt Date: 20231227
  Transmission Date: 20240109
  Serious: Yes (Other)
  Sender: FDA-Public Use
  Company Number: None

PATIENT
  Age: 79 Year
  Sex: Female
  Weight: 48 kg

DRUGS (1)
  1. AVASTIN [Suspect]
     Active Substance: BEVACIZUMAB
     Indication: Invasive breast carcinoma
     Route: 065
     Dates: start: 20211124, end: 202209

REACTIONS (1)
  - Nodular rash [Recovered/Resolved]

NARRATIVE: CASE EVENT DATE: 20211214
